FAERS Safety Report 8583520-8 (Version None)
Quarter: 2012Q3

REPORT INFORMATION
  Report Type: 
  Country: None (occurrence: None)
  Receive Date: 20120809
  Receipt Date: 20120801
  Transmission Date: 20120928
  Serious: Yes (Hospitalization, Other)
  Sender: FDA-Public Use
  Company Number: PHHY2012BR045439

PATIENT
  Age: 60 Year
  Sex: Female

DRUGS (4)
  1. DIOVAN HCT [Suspect]
     Dosage: 1 DF(160 MG VALS / 25MG HCTZ), DAILY
     Dates: start: 20120501
  2. DIOVAN [Suspect]
     Dosage: 160 MG,
  3. HYDROCHLOROTHIAZIDE [Suspect]
  4. DIOVAN HCT [Suspect]
     Indication: HYPERTENSION
     Dosage: 1 DF(160 MG VALS / 25MG HCTZ), DAILY
     Dates: start: 20100101

REACTIONS (12)
  - HEADACHE [None]
  - PNEUMONIA [None]
  - SPINAL PAIN [None]
  - DIZZINESS [None]
  - BLOOD PRESSURE FLUCTUATION [None]
  - NEPHROLITHIASIS [None]
  - MALAISE [None]
  - PAIN [None]
  - CHOLELITHIASIS [None]
  - URINARY TRACT INFECTION [None]
  - DRUG DISPENSING ERROR [None]
  - INFLUENZA [None]
